FAERS Safety Report 21289447 (Version 1)
Quarter: 2022Q3

REPORT INFORMATION
  Report Type: Spontaneous
  Country: CH (occurrence: None)
  Receive Date: 20220902
  Receipt Date: 20220902
  Transmission Date: 20221027
  Serious: Yes (Other)
  Sender: FDA-Public Use
  Company Number: CH-ROCHE-3170086

PATIENT
  Sex: Female

DRUGS (5)
  1. BEVACIZUMAB [Suspect]
     Active Substance: BEVACIZUMAB
     Indication: Appendix cancer metastatic
     Route: 065
     Dates: start: 202002
  2. LEUCOVORIN [Suspect]
     Active Substance: LEUCOVORIN
     Indication: Appendix cancer metastatic
     Route: 065
     Dates: start: 202002
  3. FLUOROURACIL [Suspect]
     Active Substance: FLUOROURACIL
     Indication: Appendix cancer metastatic
     Route: 065
     Dates: start: 202002
  4. OXALIPLATIN [Suspect]
     Active Substance: OXALIPLATIN
     Indication: Appendix cancer metastatic
     Route: 065
     Dates: start: 202002
  5. IRINOTECAN [Suspect]
     Active Substance: IRINOTECAN
     Indication: Appendix cancer metastatic
     Route: 065
     Dates: start: 202002

REACTIONS (1)
  - Disease progression [Unknown]
